FAERS Safety Report 16870063 (Version 1)
Quarter: 2019Q3

REPORT INFORMATION
  Report Type: Spontaneous
  Country: FR (occurrence: FR)
  Receive Date: 20190930
  Receipt Date: 20190930
  Transmission Date: 20191005
  Serious: Yes (Other)
  Sender: FDA-Public Use
  Company Number: FR-MYLANLABS-2019M1090971

PATIENT
  Sex: Female

DRUGS (3)
  1. MAALOX ANTACID [Suspect]
     Active Substance: ALUMINUM HYDROXIDE\DIMETHICONE\MAGNESIUM HYDROXIDE
     Indication: PAIN
     Dosage: UNK
     Route: 065
  2. GAVISCON ACID BREAKTHROUGH FORMULA [Concomitant]
     Indication: PAIN
     Dosage: UNK
  3. OMEPRAZOLE. [Suspect]
     Active Substance: OMEPRAZOLE
     Indication: PAIN
     Dosage: UNK
     Route: 065

REACTIONS (4)
  - Exposure during pregnancy [Unknown]
  - Oesophageal perforation [Unknown]
  - Oesophageal pain [Unknown]
  - Drug ineffective [Unknown]
